FAERS Safety Report 10297945 (Version 4)
Quarter: 2014Q3

REPORT INFORMATION
  Report Type: Spontaneous
  Country: PK (occurrence: PK)
  Receive Date: 20140711
  Receipt Date: 20140828
  Transmission Date: 20150326
  Serious: Yes (Death, Hospitalization)
  Sender: FDA-Public Use
  Company Number: PK-PFIZER INC-2014190043

PATIENT
  Age: 50 Year
  Sex: Male

DRUGS (1)
  1. SUTENT [Suspect]
     Active Substance: SUNITINIB MALATE
     Indication: METASTATIC RENAL CELL CARCINOMA
     Dosage: 25 MG, 2X/DAY
     Route: 048
     Dates: start: 201406, end: 201406

REACTIONS (7)
  - Disease progression [Unknown]
  - Metastatic renal cell carcinoma [Unknown]
  - Hypophagia [Unknown]
  - Asthenia [Unknown]
  - Cardiopulmonary failure [Fatal]
  - Mucosal inflammation [Unknown]
  - Decreased appetite [Unknown]

NARRATIVE: CASE EVENT DATE: 201406
